FAERS Safety Report 8150595 (Version 3)
Quarter: 2012Q4

REPORT INFORMATION
  Report Type: 
  Country: FR (occurrence: FR)
  Receive Date: 20110922
  Receipt Date: 20121127
  Transmission Date: 20130627
  Serious: Yes (Other)
  Sender: FDA-Public Use
  Company Number: PHHY2011FR83231

PATIENT
  Age: 76 Year
  Sex: Female
  Weight: 43 kg

DRUGS (4)
  1. ACLASTA [Suspect]
     Indication: OSTEOPOROSIS
     Dosage: 5 mg, anually
     Route: 042
     Dates: start: 200901
  2. ACLASTA [Suspect]
     Dosage: 5 mg, anually
     Route: 042
     Dates: start: 201101
  3. UVEDOSE [Concomitant]
     Dosage: UNK UKN, UNK
  4. FIXICAL [Concomitant]
     Dosage: UNK UKN, UNK

REACTIONS (2)
  - Osteolysis [Recovering/Resolving]
  - Toothache [Unknown]
